FAERS Safety Report 21834701 (Version 1)
Quarter: 2023Q1

REPORT INFORMATION
  Report Type: Spontaneous
  Country: US (occurrence: US)
  Receive Date: 20230108
  Receipt Date: 20230108
  Transmission Date: 20230417
  Serious: No
  Sender: FDA-Public Use
  Company Number: US-ALKERMES INC.-ALK-2023-000009

PATIENT
  Sex: Female

DRUGS (1)
  1. VIVITROL [Suspect]
     Active Substance: NALTREXONE
     Indication: Alcoholism
     Dosage: 380 MILLIGRAM, QMO
     Route: 030
     Dates: start: 202212

REACTIONS (6)
  - Dysphagia [Unknown]
  - Injection site reaction [Unknown]
  - Injection site mass [Unknown]
  - Dizziness [Unknown]
  - Nausea [Unknown]
  - Alcohol use [Unknown]
